FAERS Safety Report 13272094 (Version 1)
Quarter: 2017Q1

REPORT INFORMATION
  Report Type: Spontaneous
  Country: US (occurrence: US)
  Receive Date: 20170227
  Receipt Date: 20170227
  Transmission Date: 20170428
  Serious: Yes (Hospitalization)
  Sender: FDA-Public Use
  Company Number: US-INDICUS PHARMA-000475

PATIENT
  Age: 54 Year
  Sex: Female

DRUGS (3)
  1. LISINOPRIL. [Suspect]
     Active Substance: LISINOPRIL
     Indication: HYPERTENSION
  2. METFORMIN [Suspect]
     Active Substance: METFORMIN HYDROCHLORIDE
     Indication: TYPE 2 DIABETES MELLITUS
  3. SIMVASTATIN. [Suspect]
     Active Substance: SIMVASTATIN
     Indication: PRODUCT USED FOR UNKNOWN INDICATION

REACTIONS (7)
  - Lactic acidosis [Recovered/Resolved]
  - Shock [Recovered/Resolved]
  - Multiple organ dysfunction syndrome [Recovered/Resolved]
  - Acute kidney injury [Recovered/Resolved]
  - Respiratory failure [Recovered/Resolved]
  - Hypothermia [Recovered/Resolved]
  - Urinary tract infection [Unknown]
